FAERS Safety Report 7509605-2 (Version None)
Quarter: 2011Q2

REPORT INFORMATION
  Report Type: 
  Country: None (occurrence: None)
  Receive Date: 20110527
  Receipt Date: 20110513
  Transmission Date: 20111010
  Serious: No
  Sender: FDA-Public Use
  Company Number: US-B.I. PHARMACEUTICALS,INC./RIDGEFIELD-2011-BP-13114BP

PATIENT
  Age: 82 Year
  Sex: Male

DRUGS (13)
  1. GABAPENTIN [Concomitant]
     Indication: ARTHRALGIA
     Route: 048
  2. NEXIUM [Concomitant]
     Indication: ABDOMINAL DISCOMFORT
     Route: 048
  3. CALCIUM CARBONATE [Concomitant]
     Indication: PROPHYLAXIS
  4. HYDROCHLOROTHIAZIDE [Concomitant]
     Indication: HYPERTENSION
     Route: 048
     Dates: start: 20110401
  5. FLOMAX [Concomitant]
     Indication: PROSTATIC DISORDER
     Route: 048
  6. PROSCAR [Concomitant]
     Indication: PROSTATIC DISORDER
     Route: 048
  7. AMBIEN [Concomitant]
     Indication: ANXIETY
     Route: 048
  8. BENICAR [Concomitant]
     Indication: HYPERTENSION
     Route: 048
     Dates: start: 20110401
  9. BENICAR [Concomitant]
     Indication: ARRHYTHMIA
  10. GABAPENTIN [Concomitant]
     Indication: OSTEOARTHRITIS
  11. MULTI-VITAMIN [Concomitant]
     Indication: PROPHYLAXIS
  12. SPIRIVA [Suspect]
     Indication: EMPHYSEMA
     Dosage: 18 MCG
     Route: 055
     Dates: start: 20110401
  13. XANAX [Concomitant]
     Indication: ANXIETY
     Route: 048

REACTIONS (2)
  - DRUG INEFFECTIVE [None]
  - DYSPNOEA [None]
